FAERS Safety Report 14013309 (Version 2)
Quarter: 2018Q2

REPORT INFORMATION
  Report Type: Spontaneous
  Country: FR (occurrence: FR)
  Receive Date: 20170926
  Receipt Date: 20180620
  Transmission Date: 20180711
  Serious: Yes (Other)
  Sender: FDA-Public Use
  Company Number: FR-MERCK KGAA-2027797

PATIENT
  Age: 39 Year
  Sex: Male
  Weight: 72 kg

DRUGS (6)
  1. CYNOMEL [Concomitant]
     Active Substance: LIOTHYRONINE SODIUM
     Dates: start: 2006
  2. IDEOS (LEKOVIT CA) [Concomitant]
  3. NOVOTHYROX [Suspect]
     Active Substance: LEVOTHYROXINE SODIUM
     Indication: THYROIDECTOMY
     Route: 048
     Dates: start: 201703, end: 20170915
  4. LEDERFOLINE [Concomitant]
     Active Substance: LEUCOVORIN CALCIUM
  5. VITAMIN B12 [Concomitant]
     Active Substance: CYANOCOBALAMIN
  6. LYSANXIA [Concomitant]
     Active Substance: PRAZEPAM

REACTIONS (14)
  - Vertigo [Recovered/Resolved]
  - Headache [Recovered/Resolved]
  - Alopecia [Not Recovered/Not Resolved]
  - Hypersensitivity [Not Recovered/Not Resolved]
  - Muscle spasms [Recovered/Resolved]
  - Immune system disorder [Recovering/Resolving]
  - Nausea [Recovering/Resolving]
  - Loss of libido [Recovered/Resolved]
  - Sleep disorder [Recovering/Resolving]
  - Blood thyroid stimulating hormone [Recovered/Resolved]
  - Appetite disorder [Not Recovered/Not Resolved]
  - Irritability [Recovered/Resolved]
  - Asthenia [Recovered/Resolved]
  - Suicidal ideation [Recovered/Resolved]

NARRATIVE: CASE EVENT DATE: 2017
